FAERS Safety Report 9909601 (Version 2)
Quarter: 2014Q1

REPORT INFORMATION
  Report Type: Spontaneous
  Country: JP (occurrence: JP)
  Receive Date: 20140219
  Receipt Date: 20140227
  Transmission Date: 20141002
  Serious: Yes (Other)
  Sender: FDA-Public Use
  Company Number: JP-ASTRAZENECA-2014SE10410

PATIENT
  Sex: 0

DRUGS (2)
  1. XYLOCAINE VISCOUS [Suspect]
     Indication: LOCAL ANAESTHESIA
     Dosage: DOSE UNKNOWN
     Route: 049
  2. XYLOCAINE PUMP SPRAY [Suspect]
     Indication: LOCAL ANAESTHESIA
     Route: 049

REACTIONS (1)
  - Pharyngeal oedema [Unknown]
